FAERS Safety Report 13106671 (Version 1)
Quarter: 2017Q1

REPORT INFORMATION
  Report Type: Spontaneous
  Country: SA (occurrence: SA)
  Receive Date: 20170111
  Receipt Date: 20170111
  Transmission Date: 20170428
  Serious: Yes (Hospitalization)
  Sender: FDA-Public Use
  Company Number: SA-MYLANLABS-2017M1001907

PATIENT

DRUGS (4)
  1. CALCITONIN SALMON. [Suspect]
     Active Substance: CALCITONIN SALMON
     Dosage: 200 UNK, UNK
     Route: 030
  2. CINACALCET [Suspect]
     Active Substance: CINACALCET
     Indication: HYPERPARATHYROIDISM PRIMARY
     Dosage: UNK
  3. CALCITONIN SALMON. [Suspect]
     Active Substance: CALCITONIN SALMON
     Indication: HYPERPARATHYROIDISM PRIMARY
     Dosage: UNK UNK
  4. ZOLEDRONIC ACID [Suspect]
     Active Substance: ZOLEDRONIC ACID
     Indication: BLOOD CALCIUM INCREASED
     Dosage: 4 MG, UNK
     Route: 042

REACTIONS (2)
  - Hypercalcaemia [Recovered/Resolved]
  - Hypocalcaemia [Recovered/Resolved]
